FAERS Safety Report 4573822-4 (Version None)
Quarter: 2005Q1

REPORT INFORMATION
  Report Type: 
  Country: None (occurrence: None)
  Receive Date: 20050203
  Receipt Date: 20050126
  Transmission Date: 20050727
  Serious: Yes (Death)
  Sender: FDA-Public Use
  Company Number: S05-USA-00397-01

PATIENT
  Age: 30 Year
  Sex: Female
  Weight: 113.3993 kg

DRUGS (3)
  1. NAMENDA [Suspect]
     Indication: BIPOLAR DISORDER
     Dates: start: 20040101, end: 20050101
  2. BIRTH CONTROL PILLS (NOS) [Concomitant]
  3. 4-5 PSYCHIATRIC MEDICATIONS (NOS) [Concomitant]

REACTIONS (2)
  - CARDIAC FAILURE CONGESTIVE [None]
  - DIZZINESS [None]
